FAERS Safety Report 19722456 (Version 1)
Quarter: 2021Q3

REPORT INFORMATION
  Report Type: Spontaneous
  Country: US (occurrence: US)
  Receive Date: 20210819
  Receipt Date: 20210819
  Transmission Date: 20211014
  Serious: No
  Sender: FDA-Public Use
  Company Number: US-ALFASIGMA USA, INC.-2020US006633

PATIENT

DRUGS (1)
  1. ZELNORM [Suspect]
     Active Substance: TEGASEROD MALEATE
     Indication: PRODUCT USED FOR UNKNOWN INDICATION
     Dosage: UNK
     Dates: start: 202009

REACTIONS (2)
  - Alopecia [Unknown]
  - Flatulence [Unknown]

NARRATIVE: CASE EVENT DATE: 2020
